FAERS Safety Report 7963635-5 (Version None)
Quarter: 2011Q4

REPORT INFORMATION
  Report Type: 
  Country: None (occurrence: None)
  Receive Date: 20111208
  Receipt Date: 20111104
  Transmission Date: 20120403
  Serious: No
  Sender: FDA-Public Use
  Company Number: US-BAYER-2011-107946

PATIENT
  Age: 67 Year
  Sex: Male

DRUGS (2)
  1. NYSTATIN [Concomitant]
     Indication: CANDIDIASIS
  2. CIPROFLOXACIN [Suspect]
     Indication: PROSTATE INFECTION
     Dosage: 1 DF, BID
     Dates: start: 20110601

REACTIONS (1)
  - TONGUE DISCOLOURATION [None]
